FAERS Safety Report 8304997-9 (Version None)
Quarter: 2012Q2

REPORT INFORMATION
  Report Type: 
  Country: None (occurrence: None)
  Receive Date: 20120423
  Receipt Date: 20120417
  Transmission Date: 20120825
  Serious: No
  Sender: FDA-Public Use
  Company Number: US-BAYER-2012-038877

PATIENT
  Age: 85 Year
  Sex: Male
  Weight: 78 kg

DRUGS (5)
  1. ALEVE (CAPLET) [Suspect]
     Indication: PAIN
     Dosage: 1 TAB, USED ONLY ONE TIME
     Route: 048
     Dates: start: 20120416, end: 20120416
  2. LISINOPRIL [Concomitant]
  3. TAMSULOSIN HCL [Concomitant]
  4. ATENOLOL [Concomitant]
  5. MIRALAX [Concomitant]

REACTIONS (1)
  - LIP SWELLING [None]
